FAERS Safety Report 9379092 (Version 2)
Quarter: 2013Q3

REPORT INFORMATION
  Report Type: Report from Study
  Country: TH (occurrence: TH)
  Receive Date: 20130702
  Receipt Date: 20130703
  Transmission Date: 20140515
  Serious: Yes (Death)
  Sender: FDA-Public Use
  Company Number: PHHY2013TH067989

PATIENT
  Age: 83 Year
  Sex: Male

DRUGS (1)
  1. ZOMETA [Suspect]
     Indication: METASTASES TO BONE
     Dosage: 4 MG/ TIME /MONTH (EVERY MONTH)
     Route: 041

REACTIONS (3)
  - Infection [Fatal]
  - Cerebral thrombosis [Fatal]
  - Anaemia [Unknown]
